FAERS Safety Report 7685947-5 (Version None)
Quarter: 2011Q3

REPORT INFORMATION
  Report Type: 
  Country: None (occurrence: None)
  Receive Date: 20110815
  Receipt Date: 20110815
  Transmission Date: 20111222
  Serious: Yes (Other)
  Sender: FDA-Public Use
  Company Number: None

PATIENT
  Age: 92 Year
  Sex: Female
  Weight: 73.6 kg

DRUGS (17)
  1. ARICEPT [Concomitant]
  2. NITROGLYCERIN [Concomitant]
  3. PANTROPAZOLE NA [Concomitant]
  4. ISOSORBIDE MONOMITRATE [Concomitant]
  5. ALLOPURINOL [Concomitant]
  6. MECLIZINE HCL [Concomitant]
  7. MORPHINE SULFATE [Concomitant]
  8. CILOSTAZOL [Concomitant]
  9. COZAAR [Concomitant]
  10. COREG [Concomitant]
  11. MORPHINE SULFATE [Concomitant]
  12. DOCUSATE SODIUM [Concomitant]
  13. PROMETHAZINE DM [Concomitant]
  14. PRADAXA [Suspect]
     Indication: ATRIAL FIBRILLATION
     Dosage: 75MG TWICE DAILY ORAL
     Route: 048
     Dates: start: 20110302, end: 20110313
  15. CRESTOR [Concomitant]
  16. PROCHLOROPERAZINE MAL [Concomitant]
  17. LORAZEPAM [Concomitant]

REACTIONS (5)
  - HAEMATOCHEZIA [None]
  - LIP HAEMORRHAGE [None]
  - HEADACHE [None]
  - GASTROINTESTINAL HAEMORRHAGE [None]
  - ABDOMINAL PAIN [None]
